FAERS Safety Report 19857411 (Version 1)
Quarter: 2021Q3

REPORT INFORMATION
  Report Type: Report from Study
  Country: JP (occurrence: JP)
  Receive Date: 20210920
  Receipt Date: 20210920
  Transmission Date: 20211014
  Serious: Yes (Death)
  Sender: FDA-Public Use
  Company Number: JP-JNJFOC-A-NJ2019-189784

PATIENT
  Age: 6 Decade
  Sex: Female

DRUGS (4)
  1. VENTAVIS [Suspect]
     Active Substance: ILOPROST
     Indication: PULMONARY ARTERIAL HYPERTENSION
     Route: 055
     Dates: start: 20160829, end: 20160925
  2. VENTAVIS [Suspect]
     Active Substance: ILOPROST
     Route: 055
     Dates: start: 20160926, end: 20161004
  3. KAYEXALATE [Concomitant]
     Active Substance: SODIUM POLYSTYRENE SULFONATE
     Dosage: DAILY DOSE 3.27 G
  4. VENTAVIS [Suspect]
     Active Substance: ILOPROST
     Route: 055
     Dates: start: 20161005

REACTIONS (1)
  - Death [Fatal]
